FAERS Safety Report 7225263-9 (Version None)
Quarter: 2011Q1

REPORT INFORMATION
  Report Type: 
  Country: None (occurrence: None)
  Receive Date: 20110113
  Receipt Date: 20110105
  Transmission Date: 20110831
  Serious: Yes (Death)
  Sender: FDA-Public Use
  Company Number: B0691403A

PATIENT
  Age: 72 Year
  Sex: Male

DRUGS (7)
  1. VELOSULIN [Concomitant]
     Indication: DIABETES MELLITUS
     Dates: start: 20060222, end: 20060224
  2. DOXIUM [Concomitant]
     Indication: RETINOPATHY
     Dates: start: 20031113
  3. GINKGO BILOBA [Concomitant]
     Indication: ILL-DEFINED DISORDER
     Dates: start: 20050817
  4. HYDROCHLOROTHIAZIDE [Concomitant]
     Indication: HYPERTENSION
     Dates: start: 20051009
  5. AMBROXOL HYDROCHLORIDE [Concomitant]
     Indication: COUGH
     Dates: start: 20051116, end: 20060116
  6. AVANDAMET [Suspect]
     Dosage: 500MG PER DAY
     Route: 048
     Dates: start: 20051116, end: 20060312
  7. INHIBACE [Concomitant]
     Indication: HYPERTENSION
     Dates: start: 20031113

REACTIONS (1)
  - PNEUMONIA BACTERIAL [None]
